FAERS Safety Report 23295318 (Version 1)
Quarter: 2023Q4

REPORT INFORMATION
  Report Type: Spontaneous
  Country: US (occurrence: None)
  Receive Date: 20231213
  Receipt Date: 20231213
  Transmission Date: 20240109
  Serious: No
  Sender: FDA-Public Use
  Company Number: None

PATIENT
  Age: 15 Year

DRUGS (1)
  1. ADBRY [Suspect]
     Active Substance: TRALOKINUMAB-LDRM
     Indication: Dermatitis atopic
     Dosage: 300MG EVERY 14 DAYS SC INJECTION
     Route: 058
     Dates: start: 20230922, end: 20231108

REACTIONS (4)
  - Eye pruritus [None]
  - Eye swelling [None]
  - Ocular hyperaemia [None]
  - Injection related reaction [None]

NARRATIVE: CASE EVENT DATE: 20231108
